FAERS Safety Report 4649980-X (Version None)
Quarter: 2005Q2

REPORT INFORMATION
  Report Type: 
  Country: None (occurrence: None)
  Receive Date: 20050428
  Receipt Date: 20050414
  Transmission Date: 20051028
  Serious: Yes (Death)
  Sender: FDA-Public Use
  Company Number: 2005BI007756

PATIENT
  Age: 64 Year
  Sex: Male
  Weight: 104.1005 kg

DRUGS (23)
  1. ZEVALIN [Suspect]
     Indication: NON-HODGKIN'S LYMPHOMA
     Dosage: SEE IMAGE
     Route: 042
     Dates: start: 20040701, end: 20040701
  2. ZEVALIN [Suspect]
     Indication: NON-HODGKIN'S LYMPHOMA
     Dosage: SEE IMAGE
     Route: 042
     Dates: start: 20040701, end: 20040701
  3. ZEVALIN [Suspect]
     Indication: NON-HODGKIN'S LYMPHOMA
     Dosage: SEE IMAGE
     Route: 042
     Dates: start: 20040727, end: 20040727
  4. ZEVALIN [Suspect]
     Indication: NON-HODGKIN'S LYMPHOMA
     Dosage: SEE IMAGE
     Route: 042
     Dates: start: 20040727, end: 20040727
  5. ZEVALIN [Suspect]
  6. ZEVALIN [Suspect]
  7. RITUXIMAB [Concomitant]
  8. CYCLOPHOSPHAMIDE [Concomitant]
  9. DOXORUBICIN HCL [Concomitant]
  10. VINCRISTINE [Concomitant]
  11. PREDNISONE [Concomitant]
  12. IFOSFAMIDE [Concomitant]
  13. CARBOPLATIN [Concomitant]
  14. ETOPOSIDE [Concomitant]
  15. METHYLPREDNISOLONE [Concomitant]
  16. CYTARABINE [Concomitant]
  17. CISPLATIN [Concomitant]
  18. ALLOPURINOL [Concomitant]
  19. SENOKOT [Concomitant]
  20. LACTULOSE [Concomitant]
  21. COUMADIN [Concomitant]
  22. ATIVAN [Concomitant]
  23. COMPAZINE [Concomitant]

REACTIONS (4)
  - BLOOD LACTATE DEHYDROGENASE INCREASED [None]
  - EXTRAVASATION [None]
  - MALIGNANT NEOPLASM PROGRESSION [None]
  - RADIATION SKIN INJURY [None]
